FAERS Safety Report 4313677-6 (Version None)
Quarter: 2004Q1

REPORT INFORMATION
  Report Type: 
  Country: None (occurrence: None)
  Receive Date: 20040305
  Receipt Date: 20040225
  Transmission Date: 20041129
  Serious: Yes (Other)
  Sender: FDA-Public Use
  Company Number: 2004-01-1449

PATIENT
  Age: 50 Year
  Sex: Male
  Weight: 94.8018 kg

DRUGS (14)
  1. ALBUTEROL [Suspect]
     Indication: DYSPNOEA
     Dosage: UNKNOWN ORAL AER INH
     Route: 048
     Dates: start: 20040117
  2. PEG-INTRON [Suspect]
     Indication: HEPATITIS C
     Dosage: 0.5 CC QWK SUBCUTANEOUS
     Route: 058
     Dates: start: 20031222, end: 20040120
  3. REBETOL [Suspect]
     Indication: HEPATITIS C
     Dosage: 800 MG QD ORAL
     Route: 048
     Dates: start: 20031222, end: 20040120
  4. ALBUTEROL INHALATION SOLUTION BID PRN INHALATION [Concomitant]
  5. LASIX [Concomitant]
  6. COMBIVENT INHALATION SOLUTION QID INHALATION [Concomitant]
  7. COUMADIN [Concomitant]
  8. SPIRONOLACTONE [Concomitant]
  9. ACIPHEX [Concomitant]
  10. DILANTIN [Concomitant]
  11. BUPROPION HYDROCHLORIDE [Concomitant]
  12. ATENENTOL [Concomitant]
  13. OXAZEPAM [Concomitant]
  14. EPOETIN ALPHA [Concomitant]

REACTIONS (7)
  - ANAEMIA [None]
  - CONFUSIONAL STATE [None]
  - DRUG LEVEL CHANGED [None]
  - DYSPNOEA [None]
  - LUNG INFECTION [None]
  - SUICIDAL IDEATION [None]
  - ULCER [None]
